FAERS Safety Report 4680916-1 (Version None)
Quarter: 2005Q2

REPORT INFORMATION
  Report Type: 
  Country: None (occurrence: None)
  Receive Date: 20050601
  Receipt Date: 20050601
  Transmission Date: 20051028
  Serious: No
  Sender: FDA-Public Use
  Company Number: None

PATIENT
  Age: 65 Year
  Sex: Female

DRUGS (1)
  1. GABAPENTIN [Suspect]
     Indication: NEUROPATHY PERIPHERAL
     Dosage: TAKE 1 TABLET FOUR TIMES A DAY
     Dates: start: 20050210

REACTIONS (3)
  - CONDITION AGGRAVATED [None]
  - NEUROPATHY PERIPHERAL [None]
  - PHARMACEUTICAL PRODUCT COMPLAINT [None]
